FAERS Safety Report 16047743 (Version 1)
Quarter: 2019Q1

REPORT INFORMATION
  Report Type: Spontaneous
  Country: IN (occurrence: IN)
  Receive Date: 20190307
  Receipt Date: 20190307
  Transmission Date: 20190418
  Serious: Yes (Other)
  Sender: FDA-Public Use
  Company Number: IN-PFIZER INC-2019099023

PATIENT
  Age: 63 Year
  Sex: Male

DRUGS (2)
  1. SUTENT [Suspect]
     Active Substance: SUNITINIB MALATE
     Indication: METASTATIC RENAL CELL CARCINOMA
     Dosage: 37.5 MG, CYCLIC (ONCE DAILY, 2 WEEKS ON, 1 WEEK OFF FOR 3 MONTHS)
     Route: 048
     Dates: start: 20180424
  2. SUTENT [Suspect]
     Active Substance: SUNITINIB MALATE
     Dosage: 25 MG, CYCLIC (2 WEEKS ON AND 1 WEEK OFF FOR 4 CYCLES (3 MONTHS))
     Route: 048

REACTIONS (8)
  - Mouth ulceration [Unknown]
  - Necrosis [Unknown]
  - Neoplasm progression [Unknown]
  - Decreased appetite [Unknown]
  - Dysphagia [Unknown]
  - Mucosal inflammation [Unknown]
  - Hypothyroidism [Unknown]
  - Abdominal pain [Unknown]

NARRATIVE: CASE EVENT DATE: 201808
